FAERS Safety Report 8065364-9 (Version None)
Quarter: 2012Q1

REPORT INFORMATION
  Report Type: 
  Country: None (occurrence: None)
  Receive Date: 20120124
  Receipt Date: 20120113
  Transmission Date: 20120608
  Serious: Yes (Other)
  Sender: FDA-Public Use
  Company Number: BR-AMGEN-BRASP2012003497

PATIENT
  Age: 56 Year
  Sex: Female
  Weight: 72.5 kg

DRUGS (1)
  1. ENBREL [Suspect]
     Indication: RHEUMATOID ARTHRITIS
     Dosage: 50 MG, EVERY 15 DAYS
     Route: 058
     Dates: start: 20080201, end: 20111001

REACTIONS (1)
  - GASTRIC STAPLING [None]
